FAERS Safety Report 23352270 (Version 7)
Quarter: 2025Q3

REPORT INFORMATION
  Report Type: Spontaneous
  Country: US (occurrence: US)
  Receive Date: 20231229
  Receipt Date: 20250806
  Transmission Date: 20251021
  Serious: Yes (Other)
  Sender: PFIZER
  Company Number: US-PFIZER INC-PV202300205330

PATIENT
  Age: 76 Year
  Sex: Female
  Weight: 114.74 kg

DRUGS (4)
  1. IBRANCE [Suspect]
     Active Substance: PALBOCICLIB
     Indication: Breast cancer female
     Route: 048
     Dates: start: 20211012
  2. IBRANCE [Suspect]
     Active Substance: PALBOCICLIB
     Route: 048
  3. XGEVA [Concomitant]
     Active Substance: DENOSUMAB
     Indication: Metastases to bone
  4. FEMARA [Concomitant]
     Active Substance: LETROZOLE
     Indication: Metastases to bone
     Dosage: 2.5 MG, DAILY

REACTIONS (2)
  - Metastases to bone [Unknown]
  - Product dose omission issue [Unknown]

NARRATIVE: CASE EVENT DATE: 20211112
